FAERS Safety Report 16267714 (Version 1)
Quarter: 2019Q2

REPORT INFORMATION
  Report Type: Spontaneous
  Country: GB (occurrence: GB)
  Receive Date: 20190503
  Receipt Date: 20190503
  Transmission Date: 20190711
  Serious: Yes (Hospitalization)
  Sender: FDA-Public Use
  Company Number: GB-TEVA-2019-GB-1044039

PATIENT
  Age: 83 Year
  Sex: Male

DRUGS (8)
  1. DIGOXIN. [Interacting]
     Active Substance: DIGOXIN
     Dosage: 62.5 MILLIGRAM DAILY; MORNING
  2. PREDNISOLONE. [Concomitant]
     Active Substance: PREDNISOLONE
  3. CLARITHROMYCIN. [Interacting]
     Active Substance: CLARITHROMYCIN
     Dosage: 1000 MILLIGRAM DAILY;
     Dates: start: 201810
  4. LEVOTHYROXINE SODIUM. [Concomitant]
     Active Substance: LEVOTHYROXINE SODIUM
  5. FINASTERIDE. [Concomitant]
     Active Substance: FINASTERIDE
  6. BISOPROLOL [Concomitant]
     Active Substance: BISOPROLOL
  7. COTRIMOXAZOLE [Suspect]
     Active Substance: SULFAMETHOXAZOLE\TRIMETHOPRIM
     Dosage: 15 ML DAILY; 10MLS MORNING AND 5MLS NIGHTLY. (80MG/400MG/5ML)
     Route: 048
     Dates: start: 201810
  8. RANITIDINE. [Concomitant]
     Active Substance: RANITIDINE

REACTIONS (3)
  - Drug monitoring procedure not performed [Unknown]
  - Drug interaction [Unknown]
  - Cardioactive drug level increased [Recovering/Resolving]

NARRATIVE: CASE EVENT DATE: 20190328
